FAERS Safety Report 8323012-4 (Version None)
Quarter: 2012Q2

REPORT INFORMATION
  Report Type: 
  Country: None (occurrence: None)
  Receive Date: 20120430
  Receipt Date: 20120419
  Transmission Date: 20120825
  Serious: Yes (Hospitalization)
  Sender: FDA-Public Use
  Company Number: US-ELI_LILLY_AND_COMPANY-US201105004958

PATIENT
  Sex: Female

DRUGS (9)
  1. BENICAR [Concomitant]
     Dosage: 20 MG, QD
  2. FORTEO [Suspect]
     Dosage: 20 UG, QD
  3. CITRACAL                           /00751520/ [Concomitant]
     Dosage: UNK, BID
  4. FORTEO [Suspect]
     Indication: OSTEOPOROSIS
     Dosage: 20 UG, QD
     Route: 065
  5. BENADRYL [Concomitant]
     Indication: HYPERSENSITIVITY
  6. CYMBALTA [Concomitant]
     Dosage: 60 MG, QD
  7. SYNTHROID [Concomitant]
     Dosage: 0.5 MG, QD
  8. VITAMIN D [Concomitant]
     Dosage: 2000 IU, QD
  9. HYDROCODONE [Concomitant]
     Dosage: 10 MG, PRN

REACTIONS (15)
  - SPINAL FUSION SURGERY [None]
  - INFLAMMATION [None]
  - GAIT DISTURBANCE [None]
  - BACK PAIN [None]
  - FALL [None]
  - MALAISE [None]
  - FATIGUE [None]
  - SINUSITIS [None]
  - ARTHRITIS [None]
  - SINUS HEADACHE [None]
  - SPINAL FRACTURE [None]
  - ARTHRALGIA [None]
  - NAUSEA [None]
  - PAIN IN EXTREMITY [None]
  - VITAMIN D DECREASED [None]
